FAERS Safety Report 10485036 (Version 1)
Quarter: 2014Q3

REPORT INFORMATION
  Report Type: Report from Study
  Country: GB (occurrence: GB)
  Receive Date: 20140930
  Receipt Date: 20140930
  Transmission Date: 20150326
  Serious: Yes (Hospitalization)
  Sender: FDA-Public Use
  Company Number: GB-ABBVIE-14K-167-1288393-00

PATIENT
  Age: 67 Year
  Sex: Female
  Weight: 69.4 kg

DRUGS (1)
  1. HUMIRA [Suspect]
     Active Substance: ADALIMUMAB
     Indication: PSORIASIS
     Route: 058
     Dates: start: 20120426, end: 20140710

REACTIONS (1)
  - Paget^s disease of nipple [Not Recovered/Not Resolved]

NARRATIVE: CASE EVENT DATE: 20140510
